FAERS Safety Report 15117985 (Version 1)
Quarter: 2018Q3

REPORT INFORMATION
  Report Type: Spontaneous
  Country: US (occurrence: US)
  Receive Date: 20180706
  Receipt Date: 20180706
  Transmission Date: 20181010
  Serious: No
  Sender: FDA-Public Use
  Company Number: US-009507513-1806USA003581

PATIENT
  Age: 17 Year
  Sex: Female

DRUGS (4)
  1. PRINIVIL [Suspect]
     Active Substance: LISINOPRIL
     Indication: HAEMATURIA
  2. PRINIVIL [Suspect]
     Active Substance: LISINOPRIL
     Indication: PROTEINURIA
     Route: 048
  3. PREDNISONE. [Concomitant]
     Active Substance: PREDNISONE
     Indication: HAEMATURIA
  4. PREDNISONE. [Concomitant]
     Active Substance: PREDNISONE
     Indication: PROTEINURIA
     Dosage: 40 MG, BID

REACTIONS (1)
  - Product use in unapproved indication [Unknown]
